FAERS Safety Report 12316886 (Version 4)
Quarter: 2016Q2

REPORT INFORMATION
  Report Type: Spontaneous
  Country: IT (occurrence: IT)
  Receive Date: 20160429
  Receipt Date: 20160509
  Transmission Date: 20160815
  Serious: Yes (Hospitalization)
  Sender: FDA-Public Use
  Company Number: IT-ROCHE-1749551

PATIENT
  Age: 82 Year
  Sex: Female

DRUGS (2)
  1. CEFTRIAXONE. [Suspect]
     Active Substance: CEFTRIAXONE
     Indication: GASTROENTERITIS BACTERIAL
     Route: 048
     Dates: start: 20160209, end: 20160209
  2. METRONIDAZOLE. [Suspect]
     Active Substance: METRONIDAZOLE
     Indication: GASTROENTERITIS BACTERIAL
     Route: 048
     Dates: start: 20160209, end: 20160209

REACTIONS (4)
  - Medication error [Unknown]
  - Diarrhoea [Unknown]
  - Rash [Unknown]
  - Hyperpyrexia [Unknown]

NARRATIVE: CASE EVENT DATE: 20160209
